FAERS Safety Report 13013122 (Version 1)
Quarter: 2016Q4

REPORT INFORMATION
  Report Type: Spontaneous
  Country: US (occurrence: US)
  Receive Date: 20161209
  Receipt Date: 20161209
  Transmission Date: 20170207
  Serious: No
  Sender: FDA-Public Use
  Company Number: US-BAYER-2016-229659

PATIENT
  Age: 2 Year
  Sex: Female

DRUGS (3)
  1. CLARITIN [Suspect]
     Active Substance: LORATADINE
     Indication: PRURITUS
  2. CLARITIN [Suspect]
     Active Substance: LORATADINE
     Indication: DERMATITIS ALLERGIC
  3. CLARITIN [Suspect]
     Active Substance: LORATADINE
     Indication: SEDATIVE THERAPY

REACTIONS (1)
  - Off label use [Unknown]
